FAERS Safety Report 20358674 (Version 1)
Quarter: 2022Q1

REPORT INFORMATION
  Report Type: Spontaneous
  Country: US (occurrence: US)
  Receive Date: 20220120
  Receipt Date: 20220120
  Transmission Date: 20220423
  Serious: No
  Sender: FDA-Public Use
  Company Number: US-NOVOPROD-826947

PATIENT
  Age: 87 Year
  Sex: Female

DRUGS (4)
  1. OZEMPIC [Suspect]
     Active Substance: SEMAGLUTIDE
     Indication: Product used for unknown indication
     Dosage: UNK
     Route: 058
  2. TOUJEO [Suspect]
     Active Substance: INSULIN GLARGINE
     Indication: Product used for unknown indication
     Dosage: 15 IU
     Route: 058
  3. TOUJEO [Suspect]
     Active Substance: INSULIN GLARGINE
     Dosage: 15IU, 26IU
  4. TOUJEO [Suspect]
     Active Substance: INSULIN GLARGINE
     Dosage: 26 IU
     Route: 058

REACTIONS (4)
  - Laryngitis [Unknown]
  - Illness [Unknown]
  - Vomiting [Unknown]
  - Drug hypersensitivity [Unknown]
